FAERS Safety Report 10393692 (Version 1)
Quarter: 2014Q3

REPORT INFORMATION
  Report Type: Spontaneous
  Country: US (occurrence: US)
  Receive Date: 20140819
  Receipt Date: 20140819
  Transmission Date: 20150326
  Serious: Yes (Death, Hospitalization, Other)
  Sender: FDA-Public Use
  Company Number: US-BRISTOL-MYERS SQUIBB COMPANY-21310859

PATIENT
  Age: 61 Year
  Sex: Male
  Weight: 74.37 kg

DRUGS (1)
  1. NULOJIX [Suspect]
     Active Substance: BELATACEPT
     Dosage: DOSAGE FORM : INJECTION
     Dates: end: 20140602

REACTIONS (3)
  - Spindle cell sarcoma [Unknown]
  - Death [Fatal]
  - Acute respiratory failure [Unknown]
